FAERS Safety Report 13599325 (Version 1)
Quarter: 2017Q2

REPORT INFORMATION
  Report Type: Report from Study
  Country: None (occurrence: NL)
  Receive Date: 20170531
  Receipt Date: 20170531
  Transmission Date: 20170830
  Serious: Yes (Other)
  Sender: FDA-Public Use
  Company Number: NL-ABBVIE-17P-114-1991423-00

PATIENT
  Age: 52 Year
  Sex: Female

DRUGS (1)
  1. LUCRIN [Suspect]
     Active Substance: LEUPROLIDE ACETATE
     Indication: ADHESION
     Route: 050
     Dates: start: 20160916

REACTIONS (1)
  - Adhesion [Recovered/Resolved]

NARRATIVE: CASE EVENT DATE: 20170508
